FAERS Safety Report 4820351-6 (Version None)
Quarter: 2005Q4

REPORT INFORMATION
  Report Type: 
  Country: None (occurrence: None)
  Receive Date: 20051104
  Receipt Date: 20051024
  Transmission Date: 20060501
  Serious: Yes (Other)
  Sender: FDA-Public Use
  Company Number: 2005GB02066

PATIENT
  Age: 50 Year
  Sex: Male

DRUGS (2)
  1. OMEPRAZOLE [Suspect]
     Indication: DYSPEPSIA
     Route: 048
     Dates: start: 20050920, end: 20051005
  2. TRAZODONE HCL [Concomitant]
     Route: 065

REACTIONS (2)
  - ANGIONEUROTIC OEDEMA [None]
  - BLISTER [None]
